FAERS Safety Report 21267998 (Version 1)
Quarter: 2022Q3

REPORT INFORMATION
  Report Type: Spontaneous
  Country: DE (occurrence: DE)
  Receive Date: 20220829
  Receipt Date: 20220829
  Transmission Date: 20221027
  Serious: Yes (Other)
  Sender: FDA-Public Use
  Company Number: DE-GILEAD-2022-0595114

PATIENT
  Age: 44 Year
  Sex: Male

DRUGS (2)
  1. DESCOVY [Suspect]
     Active Substance: EMTRICITABINE\TENOFOVIR ALAFENAMIDE FUMARATE
     Indication: HIV infection
     Dosage: UNK
     Route: 065
     Dates: start: 202012
  2. RALTEGRAVIR [Concomitant]
     Active Substance: RALTEGRAVIR

REACTIONS (3)
  - Multiple sclerosis [Not Recovered/Not Resolved]
  - Kaposi^s sarcoma [Unknown]
  - HIV-associated neurocognitive disorder [Unknown]

NARRATIVE: CASE EVENT DATE: 20210901
